FAERS Safety Report 25160221 (Version 2)
Quarter: 2025Q2

REPORT INFORMATION
  Report Type: Report from Study
  Country: US (occurrence: US)
  Receive Date: 20250404
  Receipt Date: 20250408
  Transmission Date: 20250716
  Serious: Yes (Death)
  Sender: ROCHE
  Company Number: US-ROCHE-10000250345

PATIENT
  Age: 87 Year
  Sex: Female

DRUGS (5)
  1. ACTEMRA ACTPEN [Suspect]
     Active Substance: TOCILIZUMAB
     Indication: Giant cell arteritis
     Route: 058
     Dates: start: 20240605
  2. XALATAN [Concomitant]
     Active Substance: LATANOPROST
     Dosage: ONE DROP TO BOTH EYES.
     Route: 047
  3. DORZOLAMIDE [Concomitant]
     Active Substance: DORZOLAMIDE
     Dosage: ONE DROP TO BOTH EYES TWICE DAILY.
     Route: 047
  4. PREDNISONE [Concomitant]
     Active Substance: PREDNISONE
     Route: 048
  5. ZOLOFT [Concomitant]
     Active Substance: SERTRALINE HYDROCHLORIDE
     Route: 048

REACTIONS (1)
  - Death [Fatal]

NARRATIVE: CASE EVENT DATE: 20250331
